FAERS Safety Report 8264626-X (Version None)
Quarter: 2012Q2

REPORT INFORMATION
  Report Type: 
  Country: None (occurrence: None)
  Receive Date: 20120403
  Receipt Date: 20120322
  Transmission Date: 20120825
  Serious: Yes (Disabling, Other)
  Sender: FDA-Public Use
  Company Number: 2012P1003740

PATIENT
  Age: 77 Year
  Sex: Male
  Weight: 88.4514 kg

DRUGS (4)
  1. BSS (NO PREF. NAME) [Suspect]
     Dates: start: 20111221, end: 20111221
  2. BETADINE [Concomitant]
  3. EPINEPHRINE INJECTION, USP 1 MG/ML (NO PREF. NAME) [Suspect]
     Indication: CATARACT OPERATION
     Dosage: ;IO
     Dates: start: 20111221, end: 20111221
  4. CEFUROXIME SODIUM [Suspect]
     Indication: INFECTION PROPHYLAXIS
     Dosage: ;X1;IO
     Dates: start: 20111221, end: 20111221

REACTIONS (4)
  - BLINDNESS [None]
  - TREATMENT NONCOMPLIANCE [None]
  - ENDOPHTHALMITIS [None]
  - STREPTOCOCCAL INFECTION [None]
